FAERS Safety Report 9684232 (Version 2)
Quarter: 2013Q4

REPORT INFORMATION
  Report Type: Spontaneous
  Country: US (occurrence: US)
  Receive Date: 20131112
  Receipt Date: 20131217
  Transmission Date: 20140711
  Serious: Yes (Hospitalization)
  Sender: FDA-Public Use
  Company Number: US-GLAXOSMITHKLINE-A1049162A

PATIENT
  Age: 73 Year
  Sex: Male
  Weight: 73.1 kg

DRUGS (13)
  1. MELPHALAN [Suspect]
     Indication: PLASMA CELL MYELOMA
     Dosage: 12MG SEE DOSAGE TEXT
     Route: 048
     Dates: start: 20110418, end: 20120301
  2. PREDNISONE [Suspect]
     Indication: PLASMA CELL MYELOMA
     Dosage: 100MG SEE DOSAGE TEXT
     Route: 048
     Dates: start: 20110418, end: 20120301
  3. VELCADE [Suspect]
     Indication: PLASMA CELL MYELOMA
     Dosage: 1.3MGM2 WEEKLY
     Route: 042
     Dates: start: 20110418, end: 20120301
  4. HYDROMORPHONE [Concomitant]
  5. MORPHINE [Concomitant]
  6. PREDNISONE [Concomitant]
  7. METOPROLOL SUCCINATE [Concomitant]
  8. DOCUSATE SODIUM [Concomitant]
  9. ZOLPIDEM [Concomitant]
  10. TAMSULOSIN [Concomitant]
  11. SEVELAMER CARBONATE [Concomitant]
  12. ACYCLOVIR [Concomitant]
  13. SIMVASTATIN [Concomitant]

REACTIONS (1)
  - Pneumonia [Recovered/Resolved]
